FAERS Safety Report 9530759 (Version 1)
Quarter: 2013Q2

REPORT INFORMATION
  Report Type: Spontaneous
  Country: US (occurrence: None)
  Receive Date: 20130418
  Receipt Date: 20130418
  Transmission Date: 20140414
  Serious: Yes (Other)
  Sender: FDA-Public Use
  Company Number: 0907USA03737

PATIENT
  Age: 08 Year
  Sex: Male
  Weight: 40.8 kg

DRUGS (1)
  1. SINGULAIR [Suspect]
     Dosage: ORAL
     Route: 048

REACTIONS (1)
  - Anxiety [None]
